FAERS Safety Report 6646046-4 (Version None)
Quarter: 2010Q1

REPORT INFORMATION
  Report Type: 
  Country: None (occurrence: None)
  Receive Date: 20100323
  Receipt Date: 20100315
  Transmission Date: 20100710
  Serious: Yes (Other)
  Sender: FDA-Public Use
  Company Number: ES-JNJFOC-20100304901

PATIENT
  Age: 31 Year
  Sex: Male

DRUGS (1)
  1. REMICADE [Suspect]
     Indication: CROHN'S DISEASE
     Dosage: 4 INFUSIONS ON UNSPECIFED DATES; IN MAINTENANCE PHASE
     Route: 042

REACTIONS (1)
  - TUBERCULOSIS GASTROINTESTINAL [None]
